FAERS Safety Report 6553772-4 (Version None)
Quarter: 2010Q1

REPORT INFORMATION
  Report Type: 
  Country: None (occurrence: None)
  Receive Date: 20100125
  Receipt Date: 20100125
  Transmission Date: 20100710
  Serious: Yes (Other)
  Sender: FDA-Public Use
  Company Number: None

PATIENT
  Sex: Male
  Weight: 74.8435 kg

DRUGS (5)
  1. TRILEPTAL [Suspect]
  2. ZONEGRAN [Suspect]
  3. KEPPRA [Suspect]
  4. NORVASC (AMLODIPENE) [Concomitant]
  5. LISINOPRIL [Concomitant]

REACTIONS (2)
  - AURA [None]
  - GRAND MAL CONVULSION [None]
